FAERS Safety Report 18137507 (Version 4)
Quarter: 2020Q3

REPORT INFORMATION
  Report Type: Spontaneous
  Country: US (occurrence: US)
  Receive Date: 20200812
  Receipt Date: 20200902
  Transmission Date: 20201103
  Serious: No
  Sender: FDA-Public Use
  Company Number: US-SA-2020SA208971

PATIENT

DRUGS (1)
  1. NASACORT [Suspect]
     Active Substance: TRIAMCINOLONE ACETONIDE
     Dosage: UNK
     Route: 065

REACTIONS (4)
  - Insomnia [Unknown]
  - Nasal congestion [Recovered/Resolved]
  - Product formulation issue [Unknown]
  - Drug ineffective [Unknown]
